FAERS Safety Report 7222845-5 (Version None)
Quarter: 2011Q1

REPORT INFORMATION
  Report Type: 
  Country: None (occurrence: None)
  Receive Date: 20110106
  Receipt Date: 20110106
  Transmission Date: 20110831
  Serious: Yes (Death)
  Sender: FDA-Public Use
  Company Number: None

PATIENT
  Sex: Male
  Weight: 66.2252 kg

DRUGS (1)
  1. DEMEROL [Suspect]
     Indication: MENISCUS LESION
     Dosage: PRN FOR PAIN P.O. (FROM 1996 ? UNTIL TIME OF ATTACT)
     Route: 048

REACTIONS (2)
  - MYOCARDIAL INFARCTION [None]
  - CEREBROVASCULAR ACCIDENT [None]
